FAERS Safety Report 23647532 (Version 2)
Quarter: 2024Q2

REPORT INFORMATION
  Report Type: Spontaneous
  Country: US (occurrence: US)
  Receive Date: 20240319
  Receipt Date: 20240410
  Transmission Date: 20240715
  Serious: No
  Sender: FDA-Public Use
  Company Number: US-SA-SAC20240312000583

PATIENT
  Age: 69 Year
  Sex: Male

DRUGS (1)
  1. DUPIXENT [Suspect]
     Active Substance: DUPILUMAB
     Indication: Dermatitis atopic
     Dosage: 2 DF, QM
     Route: 058

REACTIONS (5)
  - Dry skin [Unknown]
  - Skin discolouration [Unknown]
  - Pruritus [Unknown]
  - Incorrect dose administered [Unknown]
  - Eczema [Unknown]
